FAERS Safety Report 7470880-4 (Version None)
Quarter: 2011Q2

REPORT INFORMATION
  Report Type: 
  Country: None (occurrence: None)
  Receive Date: 20110510
  Receipt Date: 20110506
  Transmission Date: 20111010
  Serious: Yes (Death)
  Sender: FDA-Public Use
  Company Number: US-ELI_LILLY_AND_COMPANY-US201105001987

PATIENT
  Age: 55 Year
  Sex: Male

DRUGS (3)
  1. ADCIRCA [Suspect]
     Dosage: 1 DF, UNK
  2. DIURETICS [Concomitant]
     Dosage: 1 DF, UNK
  3. REMODULIN [Concomitant]
     Dosage: 7 DF, UNK
     Route: 042
     Dates: start: 20110121

REACTIONS (1)
  - DEATH [None]
